FAERS Safety Report 6105155-9 (Version None)
Quarter: 2009Q1

REPORT INFORMATION
  Report Type: 
  Country: None (occurrence: None)
  Receive Date: 20090304
  Receipt Date: 20090304
  Transmission Date: 20090719
  Serious: Yes (Hospitalization)
  Sender: FDA-Public Use
  Company Number: None

PATIENT
  Sex: Male
  Weight: 53.1 kg

DRUGS (1)
  1. CISPLATIN [Suspect]
     Dosage: 176 MG
     Dates: end: 20090202

REACTIONS (2)
  - ASTHENIA [None]
  - DEHYDRATION [None]
